FAERS Safety Report 13194636 (Version 1)
Quarter: 2017Q1

REPORT INFORMATION
  Report Type: Spontaneous
  Country: US (occurrence: US)
  Receive Date: 20170207
  Receipt Date: 20170207
  Transmission Date: 20170428
  Serious: No
  Sender: FDA-Public Use
  Company Number: US-JAZZ-2016-US-013418

PATIENT
  Age: 51 Year
  Sex: Female

DRUGS (32)
  1. PRIALT [Suspect]
     Active Substance: ZICONOTIDE ACETATE
     Dosage: 0.095 ?G, QH
     Route: 037
     Dates: start: 20150311, end: 20150313
  2. PRIALT [Suspect]
     Active Substance: ZICONOTIDE ACETATE
     Dosage: 0.291 ?G, QH
     Route: 037
     Dates: start: 20150529, end: 20150612
  3. PRIALT [Suspect]
     Active Substance: ZICONOTIDE ACETATE
     Dosage: 0.375 ?G, QH
     Route: 037
     Dates: start: 20150710, end: 20150720
  4. FENTANYL. [Suspect]
     Active Substance: FENTANYL
     Indication: POST LAMINECTOMY SYNDROME
  5. BONIVA [Concomitant]
     Active Substance: IBANDRONATE SODIUM
  6. PRIALT [Suspect]
     Active Substance: ZICONOTIDE ACETATE
     Indication: PAIN
     Dosage: 0.037 ?G, QH
     Route: 037
     Dates: start: 20150220, end: 20150302
  7. PRIALT [Suspect]
     Active Substance: ZICONOTIDE ACETATE
     Dosage: 0.35 ?G, QH
     Route: 037
     Dates: start: 20150626, end: 20150710
  8. OMEPRAZOLE. [Concomitant]
     Active Substance: OMEPRAZOLE
  9. PRIALT [Suspect]
     Active Substance: ZICONOTIDE ACETATE
     Indication: PAIN
     Dosage: 0.031 ?G, QH
     Route: 037
     Dates: start: 20150216, end: 20150220
  10. PRIALT [Suspect]
     Active Substance: ZICONOTIDE ACETATE
     Dosage: 0.233 ?G, QH
     Route: 037
     Dates: start: 20150414, end: 20150428
  11. DIOVAN [Concomitant]
     Active Substance: VALSARTAN
  12. PRIALT [Suspect]
     Active Substance: ZICONOTIDE ACETATE
     Dosage: 0.166 ?G, QH
     Route: 037
     Dates: start: 20150326, end: 20150403
  13. PRIALT [Suspect]
     Active Substance: ZICONOTIDE ACETATE
     Dosage: 0.42 ?G, QH
     Route: 037
     Dates: start: 20150720, end: 20150806
  14. FENTANYL. [Suspect]
     Active Substance: FENTANYL
     Indication: SPINAL PAIN
  15. PRIALT [Suspect]
     Active Substance: ZICONOTIDE ACETATE
     Dosage: 0.125 ?G, QH
     Route: 037
     Dates: start: 20150313, end: 20150320
  16. PRIALT [Suspect]
     Active Substance: ZICONOTIDE ACETATE
     Dosage: 0.254 ?G, QH
     Route: 037
     Dates: start: 20150428, end: 20150508
  17. PRIALT [Suspect]
     Active Substance: ZICONOTIDE ACETATE
     Dosage: 0.291 ?G, QH
     Route: 037
     Dates: start: 20150508, end: 20150529
  18. TECFIDERA [Concomitant]
     Active Substance: DIMETHYL FUMARATE
  19. VITAMIN D3 [Concomitant]
     Active Substance: CHOLECALCIFEROL
  20. PRIALT [Suspect]
     Active Substance: ZICONOTIDE ACETATE
     Indication: SPINAL PAIN
     Dosage: 0.025 ?G, QH
     Route: 037
     Dates: start: 20150203, end: 20150216
  21. PRIALT [Suspect]
     Active Substance: ZICONOTIDE ACETATE
     Dosage: 0.146 ?G, QH
     Route: 037
     Dates: start: 20150320, end: 20150326
  22. PRIALT [Suspect]
     Active Substance: ZICONOTIDE ACETATE
     Dosage: 0.188 ?G, QH
     Route: 037
     Dates: start: 20150403, end: 20150407
  23. PRIALT [Suspect]
     Active Substance: ZICONOTIDE ACETATE
     Dosage: 0.208 ?G, QH
     Route: 037
     Dates: start: 20150407, end: 20150414
  24. PRIALT [Suspect]
     Active Substance: ZICONOTIDE ACETATE
     Dosage: 0.32 ?G, QH
     Route: 037
     Dates: start: 20150612, end: 20150626
  25. FENTANYL. [Suspect]
     Active Substance: FENTANYL
     Indication: PAIN
  26. MYRBETRIQ [Concomitant]
     Active Substance: MIRABEGRON
  27. TOPAMAX [Concomitant]
     Active Substance: TOPIRAMATE
  28. LOMOTIL [Concomitant]
     Active Substance: ATROPINE SULFATE\DIPHENOXYLATE HYDROCHLORIDE
  29. PRIALT [Suspect]
     Active Substance: ZICONOTIDE ACETATE
     Indication: POST LAMINECTOMY SYNDROME
     Dosage: 0.05 ?G, QH
     Route: 037
     Dates: start: 20150127, end: 20150203
  30. PRIALT [Suspect]
     Active Substance: ZICONOTIDE ACETATE
     Dosage: 0.052 ?G, QH
     Route: 037
     Dates: start: 20150302, end: 20150306
  31. PRIALT [Suspect]
     Active Substance: ZICONOTIDE ACETATE
     Dosage: 0.073 ?G, QH
     Route: 037
     Dates: start: 20150306, end: 20150311
  32. FENTANYL. [Suspect]
     Active Substance: FENTANYL
     Indication: PAIN

REACTIONS (3)
  - Drug ineffective [Unknown]
  - Pain [Unknown]
  - Off label use [Unknown]

NARRATIVE: CASE EVENT DATE: 20150113
